FAERS Safety Report 13865693 (Version 1)
Quarter: 2017Q3

REPORT INFORMATION
  Report Type: Spontaneous
  Country: US (occurrence: US)
  Receive Date: 20170814
  Receipt Date: 20170814
  Transmission Date: 20171127
  Serious: No
  Sender: FDA-Public Use
  Company Number: US-ASTRAZENECA-2017SE79605

PATIENT
  Age: 66 Year
  Sex: Male
  Weight: 74.8 kg

DRUGS (7)
  1. INSULIN [Concomitant]
     Active Substance: INSULIN NOS
     Indication: BLOOD GLUCOSE ABNORMAL
     Dosage: LONG LASTING INSULIN
     Route: 058
  2. INSULIN [Concomitant]
     Active Substance: INSULIN NOS
     Indication: BLOOD GLUCOSE ABNORMAL
     Dosage: CLEAR INSULIN
     Route: 058
  3. AMLODIPINE [Concomitant]
     Active Substance: AMLODIPINE BESYLATE
     Indication: BLOOD PRESSURE ABNORMAL
     Route: 048
     Dates: start: 201707
  4. BISOPROLOL [Concomitant]
     Active Substance: BISOPROLOL
     Indication: BLOOD PRESSURE ABNORMAL
     Route: 048
  5. LOSARTAN. [Concomitant]
     Active Substance: LOSARTAN
     Indication: BLOOD PRESSURE ABNORMAL
     Route: 048
  6. BYDUREON [Suspect]
     Active Substance: EXENATIDE
     Indication: BLOOD GLUCOSE ABNORMAL
     Route: 058
     Dates: start: 2017, end: 2017
  7. ROSUVASTATIN. [Suspect]
     Active Substance: ROSUVASTATIN
     Indication: BLOOD CHOLESTEROL ABNORMAL
     Route: 048

REACTIONS (4)
  - Gastrointestinal disorder [Not Recovered/Not Resolved]
  - Constipation [Not Recovered/Not Resolved]
  - Insomnia [Not Recovered/Not Resolved]
  - Dyspepsia [Not Recovered/Not Resolved]

NARRATIVE: CASE EVENT DATE: 2017
